FAERS Safety Report 9123267 (Version 1)
Quarter: 2013Q1

REPORT INFORMATION
  Report Type: Spontaneous
  Country: GB (occurrence: None)
  Receive Date: 20130129
  Receipt Date: 20130129
  Transmission Date: 20140127
  Serious: Yes (Other)
  Sender: FDA-Public Use
  Company Number: FK201300147

PATIENT
  Age: 63 Year
  Sex: Male
  Weight: 60 kg

DRUGS (4)
  1. IRINOTECAN [Suspect]
     Indication: COLORECTAL CANCER METASTATIC
  2. FLUOROURACIL [Suspect]
     Indication: COLORECTAL CANCER METASTATIC
  3. FOLINIC ACID [Suspect]
     Indication: COLORECTAL CANCER METASTATIC
  4. ELOXATIN [Suspect]
     Indication: PRODUCT USED FOR UNKNOWN INDICATION

REACTIONS (13)
  - Transient ischaemic attack [None]
  - Joint swelling [None]
  - Abdominal tenderness [None]
  - Diarrhoea [None]
  - Abdominal pain lower [None]
  - Lethargy [None]
  - Nausea [None]
  - Hypoaesthesia [None]
  - Pain [None]
  - Pain in extremity [None]
  - Pain in extremity [None]
  - Musculoskeletal stiffness [None]
  - Vomiting [None]
